FAERS Safety Report 23936488 (Version 1)
Quarter: 2024Q2

REPORT INFORMATION
  Report Type: Other
  Country: US (occurrence: None)
  Receive Date: 20240604
  Receipt Date: 20240604
  Transmission Date: 20240716
  Serious: Yes (Death)
  Sender: FDA-Public Use
  Company Number: US-ROCHE-3407022

PATIENT
  Age: 70 Year
  Sex: Female

DRUGS (15)
  1. RITUXAN [Suspect]
     Active Substance: RITUXIMAB
     Indication: Huntington^s disease
     Dosage: INFUSE 1000MG INTRAVENOUSLY ON DAY 1 AND DAY 15, REPEAT EVERY 5?MONTH(S) AND NO SOONER THAN 16 WEEKS
     Route: 042
  2. RITUXAN [Suspect]
     Active Substance: RITUXIMAB
     Indication: Myopathy
  3. RITUXAN [Suspect]
     Active Substance: RITUXIMAB
     Indication: Cytogenetic abnormality
  4. RITUXAN [Suspect]
     Active Substance: RITUXIMAB
     Indication: Myopathy
  5. EPINEPHRINE [Concomitant]
     Active Substance: EPINEPHRINE
  6. ALBUTEROL SULFATE [Concomitant]
     Active Substance: ALBUTEROL SULFATE
  7. FAMOTIDINE [Concomitant]
     Active Substance: FAMOTIDINE
  8. GLIMEPIRIDE [Concomitant]
     Active Substance: GLIMEPIRIDE
  9. LOSARTAN [Concomitant]
     Active Substance: LOSARTAN
  10. MELOXICAM [Concomitant]
     Active Substance: MELOXICAM
  11. NAPROXEN [Concomitant]
     Active Substance: NAPROXEN
  12. PRIVIGEN [Concomitant]
     Active Substance: HUMAN IMMUNOGLOBULIN G
  13. SODIUM CHLORIDE [Concomitant]
     Active Substance: SODIUM CHLORIDE
  14. VASCEPA [Concomitant]
     Active Substance: ICOSAPENT ETHYL
  15. VENLAFAXINE [Concomitant]
     Active Substance: VENLAFAXINE HYDROCHLORIDE

REACTIONS (2)
  - Off label use [Unknown]
  - Respiratory failure [Fatal]
